FAERS Safety Report 8464741-1 (Version None)
Quarter: 2012Q2

REPORT INFORMATION
  Report Type: 
  Country: None (occurrence: None)
  Receive Date: 20120626
  Receipt Date: 20120622
  Transmission Date: 20120825
  Serious: No
  Sender: FDA-Public Use
  Company Number: US-PFIZER INC-2012151118

PATIENT
  Sex: Male
  Weight: 93.424 kg

DRUGS (3)
  1. TEMAZEPAM [Concomitant]
     Indication: SLEEP DISORDER
     Dosage: 80 MG, DAILY
  2. LYRICA [Suspect]
     Indication: NEUROPATHY PERIPHERAL
     Dosage: 25 MG, DAILY
     Dates: start: 20110101, end: 20110101
  3. LYRICA [Suspect]
     Indication: PERIPHERAL NERVE INJURY
     Dosage: 25 MG, 3X/DAY
     Dates: start: 20120101

REACTIONS (3)
  - AMNESIA [None]
  - SOMNOLENCE [None]
  - DRUG INEFFECTIVE [None]
